FAERS Safety Report 12168908 (Version 3)
Quarter: 2016Q2

REPORT INFORMATION
  Report Type: Spontaneous
  Country: US (occurrence: US)
  Receive Date: 20160310
  Receipt Date: 20160506
  Transmission Date: 20160815
  Serious: No
  Sender: FDA-Public Use
  Company Number: US-SHIRE-US201602921

PATIENT
  Age: 9 Year
  Sex: Female
  Weight: 53.4 kg

DRUGS (11)
  1. LIALDA [Suspect]
     Active Substance: MESALAMINE
     Indication: INFLAMMATORY BOWEL DISEASE
     Dosage: 2.4 G, 2X/DAY:BID
     Route: 048
     Dates: start: 20160315
  2. LORATADINE. [Concomitant]
     Active Substance: LORATADINE
     Indication: DERMATITIS CONTACT
     Dosage: 10 MG, 1X/DAY:QD
     Route: 048
     Dates: start: 201508
  3. IRON                               /00023503/ [Concomitant]
     Active Substance: IRON
     Indication: ANAEMIA
     Dosage: 325 MG, 2X/DAY:BID
     Route: 048
     Dates: start: 20160227
  4. 6 MP [Concomitant]
     Active Substance: MERCAPTOPURINE
     Indication: INFLAMMATORY BOWEL DISEASE
     Dosage: 50 MG, 1X/DAY:QD
     Route: 065
  5. REMICADE [Concomitant]
     Active Substance: INFLIXIMAB
     Indication: INFLAMMATORY BOWEL DISEASE
     Dosage: 5 MG/KG, OTHER (SEQUENCE)
     Route: 042
     Dates: start: 20160227
  6. VITAMIN D                          /00107901/ [Concomitant]
     Active Substance: ERGOCALCIFEROL
     Indication: VITAMIN SUPPLEMENTATION
  7. LIALDA [Suspect]
     Active Substance: MESALAMINE
     Indication: CROHN^S DISEASE
     Dosage: 4.8 G, 1X/DAY:QD (AT NIGHT)
     Route: 048
     Dates: start: 20160228, end: 20160314
  8. FLAGYL [Concomitant]
     Active Substance: METRONIDAZOLE\METRONIDAZOLE HYDROCHLORIDE
     Indication: INFLAMMATORY BOWEL DISEASE
     Dosage: 500 MG, 2X/DAY:BID
     Route: 065
  9. LANSOPRAZOLE. [Concomitant]
     Active Substance: LANSOPRAZOLE
     Indication: DYSPEPSIA
     Dosage: 15 MG, 1X/DAY:QD
     Route: 048
     Dates: start: 201509
  10. CIPROFLOXACIN. [Concomitant]
     Active Substance: CIPROFLOXACIN
     Indication: INFLAMMATORY BOWEL DISEASE
     Dosage: 500 MG, 2X/DAY:BID
     Route: 065
  11. VITAMIN D                          /00107901/ [Concomitant]
     Active Substance: ERGOCALCIFEROL
     Indication: VITAMIN D DECREASED
     Dosage: 1000 IU, 1X/DAY:QD
     Route: 048
     Dates: start: 2014

REACTIONS (4)
  - Inappropriate schedule of drug administration [Not Recovered/Not Resolved]
  - Abdominal pain [Recovered/Resolved]
  - Product use issue [Not Recovered/Not Resolved]
  - Drug administered to patient of inappropriate age [Not Recovered/Not Resolved]

NARRATIVE: CASE EVENT DATE: 20160227
